FAERS Safety Report 18730250 (Version 1)
Quarter: 2021Q1

REPORT INFORMATION
  Report Type: Spontaneous
  Country: AT (occurrence: AT)
  Receive Date: 20210112
  Receipt Date: 20210112
  Transmission Date: 20210419
  Serious: Yes (Hospitalization)
  Sender: FDA-Public Use
  Company Number: AT-ABBVIE-21P-009-3726091-00

PATIENT
  Sex: Male

DRUGS (1)
  1. SIXANTONE [Suspect]
     Active Substance: LEUPROLIDE ACETATE
     Indication: PRODUCT USED FOR UNKNOWN INDICATION
     Dosage: UNK?30MG
     Route: 065

REACTIONS (1)
  - Leukocytosis [Unknown]
